FAERS Safety Report 9499047 (Version 1)
Quarter: 2013Q3

REPORT INFORMATION
  Report Type: Spontaneous
  Country: IT (occurrence: IT)
  Receive Date: 20130904
  Receipt Date: 20130904
  Transmission Date: 20140515
  Serious: Yes (Life-Threatening)
  Sender: FDA-Public Use
  Company Number: IT-ACTAVIS-2013-15971

PATIENT
  Age: 72 Year
  Sex: Male

DRUGS (4)
  1. QUETIAPINE (UNKNOWN) [Suspect]
     Indication: INTENTIONAL SELF-INJURY
     Dosage: OVERDOSE WITH UNKNOWN AMOUNT
     Route: 065
     Dates: start: 20130409, end: 20130409
  2. TAVOR                              /00273201/ [Concomitant]
     Indication: ANXIETY
     Route: 065
  3. LACIREX [Concomitant]
     Indication: HYPERTENSION
     Route: 065
  4. RATACAND [Concomitant]
     Indication: HYPERTENSION
     Route: 065

REACTIONS (4)
  - Coma [Recovered/Resolved]
  - Drug abuse [Recovered/Resolved]
  - Intentional drug misuse [Recovered/Resolved]
  - Overdose [Recovered/Resolved]
